FAERS Safety Report 4843565-8 (Version None)
Quarter: 2005Q4

REPORT INFORMATION
  Report Type: 
  Country: None (occurrence: None)
  Receive Date: 20051202
  Receipt Date: 20051121
  Transmission Date: 20060501
  Serious: Yes (Other)
  Sender: FDA-Public Use
  Company Number: GB-ABBOTT-05P-167-0317921-00

PATIENT
  Age: 56 Year
  Sex: Female

DRUGS (7)
  1. KALETRA [Suspect]
     Indication: DRUG USE FOR UNKNOWN INDICATION
  2. DICLOFENAC [Suspect]
     Indication: BACK PAIN
  3. SULFAMETHOXAZOLE [Suspect]
     Indication: DRUG USE FOR UNKNOWN INDICATION
  4. TRIMETHOPRIM [Suspect]
     Indication: DRUG USE FOR UNKNOWN INDICATION
  5. VIREAD [Suspect]
     Indication: DRUG USE FOR UNKNOWN INDICATION
  6. ABACAVIR [Suspect]
     Indication: DRUG USE FOR UNKNOWN INDICATION
  7. ATENOLOL [Concomitant]
     Indication: DRUG USE FOR UNKNOWN INDICATION

REACTIONS (12)
  - ARTHRALGIA [None]
  - BACK PAIN [None]
  - BLOOD ALKALINE PHOSPHATASE INCREASED [None]
  - BLOOD BICARBONATE DECREASED [None]
  - BLOOD CREATINE INCREASED [None]
  - BLOOD PHOSPHORUS DECREASED [None]
  - BONE PAIN [None]
  - JOINT SWELLING [None]
  - MYOPATHY [None]
  - OLIGURIA [None]
  - PROTEINURIA [None]
  - RENAL IMPAIRMENT [None]
